FAERS Safety Report 7592144-0 (Version None)
Quarter: 2011Q3

REPORT INFORMATION
  Report Type: 
  Country: None (occurrence: None)
  Receive Date: 20110706
  Receipt Date: 20110629
  Transmission Date: 20111222
  Serious: Yes (Death, Hospitalization)
  Sender: FDA-Public Use
  Company Number: DE-SANOFI-AVENTIS-2011SA031874

PATIENT
  Age: 73 Year
  Sex: Male
  Weight: 85 kg

DRUGS (4)
  1. TAXOTERE [Suspect]
     Route: 041
     Dates: start: 20110506, end: 20110506
  2. AMLODIPINE [Concomitant]
     Route: 048
  3. DEXAMETHASONE [Concomitant]
     Indication: PREMEDICATION
     Dosage: DAILY DOSE: 1-2 X 8 MG
     Route: 048
     Dates: start: 20110505, end: 20110507
  4. NEBIVOLOL [Concomitant]
     Route: 048

REACTIONS (12)
  - JAUNDICE [None]
  - AGRANULOCYTOSIS [None]
  - PNEUMONIA [None]
  - MUCOSAL INFLAMMATION [None]
  - PLATELET COUNT DECREASED [None]
  - PANCYTOPENIA [None]
  - WHITE BLOOD CELL COUNT DECREASED [None]
  - RED BLOOD CELL COUNT DECREASED [None]
  - ACUTE HEPATIC FAILURE [None]
  - BLOOD CHOLINESTERASE DECREASED [None]
  - GENERAL PHYSICAL HEALTH DETERIORATION [None]
  - HYPERBILIRUBINAEMIA [None]
